FAERS Safety Report 7539154-7 (Version None)
Quarter: 2011Q2

REPORT INFORMATION
  Report Type: 
  Country: None (occurrence: None)
  Receive Date: 20110610
  Receipt Date: 20031211
  Transmission Date: 20111010
  Serious: Yes (Death)
  Sender: FDA-Public Use
  Company Number: PHHO2003JP15650

PATIENT
  Sex: Female
  Weight: 53 kg

DRUGS (2)
  1. HALCION [Concomitant]
     Indication: SLEEP DISORDER
  2. DIOVAN [Suspect]
     Indication: HYPERTENSION
     Dosage: 80 MG, QD
     Dates: start: 20021128

REACTIONS (1)
  - DEATH [None]
